FAERS Safety Report 5863019-X (Version None)
Quarter: 2008Q3

REPORT INFORMATION
  Report Type: 
  Country: None (occurrence: None)
  Receive Date: 20080828
  Receipt Date: 20080822
  Transmission Date: 20090109
  Serious: Yes (Hospitalization)
  Sender: FDA-Public Use
  Company Number: KR-JNJFOC-20080706321

PATIENT
  Age: 36 Year
  Sex: Male
  Weight: 61.8 kg

DRUGS (6)
  1. INFLIXIMAB [Suspect]
     Route: 042
  2. INFLIXIMAB [Suspect]
     Indication: ANKYLOSING SPONDYLITIS
     Route: 042
  3. ACECLOFENAC [Concomitant]
     Indication: ANKYLOSING SPONDYLITIS
     Route: 048
  4. STILLEN [Concomitant]
     Indication: GASTROINTESTINAL DISORDER THERAPY
     Route: 048
  5. ITOPRIDE HCL [Concomitant]
     Indication: GASTROINTESTINAL DISORDER THERAPY
     Route: 048
  6. HYDROCORTISONE SODIUM S [Concomitant]
     Indication: ANKYLOSING SPONDYLITIS
     Route: 042

REACTIONS (1)
  - DISSEMINATED TUBERCULOSIS [None]
